FAERS Safety Report 10175864 (Version 2)
Quarter: 2014Q2

REPORT INFORMATION
  Report Type: Spontaneous
  Country: US (occurrence: US)
  Receive Date: 20140516
  Receipt Date: 20140516
  Transmission Date: 20141212
  Serious: Yes (Hospitalization, Other)
  Sender: FDA-Public Use
  Company Number: US-ABBVIE-14P-163-1234228-00

PATIENT
  Age: 17 Year
  Sex: Female

DRUGS (10)
  1. HUMIRA [Suspect]
     Indication: COLITIS ULCERATIVE
     Dates: start: 201110, end: 201311
  2. HUMIRA [Suspect]
     Indication: ARTHRITIS
     Dates: start: 2013, end: 20140417
  3. IRON [Concomitant]
     Indication: PRODUCT USED FOR UNKNOWN INDICATION
  4. MULTIVITAMINS [Concomitant]
     Indication: PRODUCT USED FOR UNKNOWN INDICATION
  5. PANTOPRAZOLE [Concomitant]
     Indication: PRODUCT USED FOR UNKNOWN INDICATION
     Dates: start: 201404
  6. MESALAMINE [Concomitant]
     Indication: PRODUCT USED FOR UNKNOWN INDICATION
     Dates: start: 201404
  7. ZOFRAN [Concomitant]
     Indication: PRODUCT USED FOR UNKNOWN INDICATION
     Dates: start: 201404
  8. TYLENOL [Concomitant]
     Indication: PRODUCT USED FOR UNKNOWN INDICATION
     Dates: start: 201404
  9. ZANTAC [Concomitant]
     Indication: PRODUCT USED FOR UNKNOWN INDICATION
     Dates: start: 201404
  10. UNKNOWN PROTON PUMP INHIBITOR [Concomitant]
     Indication: PRODUCT USED FOR UNKNOWN INDICATION
     Dates: start: 201404

REACTIONS (13)
  - Renal mass [Unknown]
  - Pleural effusion [Recovered/Resolved]
  - Unevaluable event [Unknown]
  - Drug effect decreased [Unknown]
  - Acute focal bacterial nephritis [Unknown]
  - Pyelonephritis [Unknown]
  - Viral infection [Recovered/Resolved]
  - Colitis ulcerative [Unknown]
  - Vomiting [Recovered/Resolved]
  - Pyrexia [Unknown]
  - Staphylococcal infection [Unknown]
  - Disease progression [Unknown]
  - Sepsis [Recovering/Resolving]
